FAERS Safety Report 19277957 (Version 1)
Quarter: 2021Q2

REPORT INFORMATION
  Report Type: Spontaneous
  Country: EG (occurrence: EG)
  Receive Date: 20210520
  Receipt Date: 20210520
  Transmission Date: 20210717
  Serious: Yes (Other)
  Sender: FDA-Public Use
  Company Number: EG-HIKMA PHARMACEUTICALS USA INC.-EG-H14001-21-02328

PATIENT
  Age: 40 Year
  Sex: Female

DRUGS (2)
  1. UNITAXEL [Suspect]
     Active Substance: PACLITAXEL
     Indication: BREAST CANCER
     Route: 042
     Dates: start: 202103
  2. UNITAXEL [Suspect]
     Active Substance: PACLITAXEL
     Route: 042
     Dates: start: 202103

REACTIONS (6)
  - Bone pain [Recovered/Resolved]
  - Neutropenia [Unknown]
  - Lymphocytosis [Unknown]
  - Aspartate aminotransferase increased [Unknown]
  - Alanine aminotransferase increased [Unknown]
  - Hypochromic anaemia [Unknown]

NARRATIVE: CASE EVENT DATE: 20210324
